FAERS Safety Report 6709466-5 (Version None)
Quarter: 2010Q2

REPORT INFORMATION
  Report Type: 
  Country: None (occurrence: None)
  Receive Date: 20100429
  Receipt Date: 20100415
  Transmission Date: 20101027
  Serious: Yes (Other)
  Sender: FDA-Public Use
  Company Number: 1000013236

PATIENT
  Age: 72 Year
  Sex: Male

DRUGS (3)
  1. MEMANTINE HCL [Suspect]
     Indication: DEMENTIA ALZHEIMER'S TYPE
     Dosage: 20 MG (20 MG, 1 IN 1 D), ORAL
     Route: 048
     Dates: start: 20080423, end: 20100408
  2. KARY UNI [Concomitant]
  3. TIMOLOL MALEATE [Concomitant]

REACTIONS (9)
  - DECREASED APPETITE [None]
  - DEPRESSION [None]
  - LUNG CARCINOMA CELL TYPE UNSPECIFIED STAGE IV [None]
  - METASTASES TO BONE [None]
  - METASTASES TO CENTRAL NERVOUS SYSTEM [None]
  - METASTASES TO LYMPH NODES [None]
  - PORIOMANIA [None]
  - RHABDOMYOLYSIS [None]
  - WEIGHT DECREASED [None]
